FAERS Safety Report 18396406 (Version 1)
Quarter: 2020Q4

REPORT INFORMATION
  Report Type: Report from Study
  Country: None (occurrence: US)
  Receive Date: 20201019
  Receipt Date: 20201019
  Transmission Date: 20210114
  Serious: Yes (Hospitalization, Other)
  Sender: FDA-Public Use
  Company Number: US-ABBVIE-20K-163-3398548-00

PATIENT
  Age: 71 Year
  Sex: Female
  Weight: 65.38 kg

DRUGS (2)
  1. CLARITIN [Concomitant]
     Active Substance: LORATADINE
     Indication: PRODUCT USED FOR UNKNOWN INDICATION
  2. HUMIRA [Suspect]
     Active Substance: ADALIMUMAB
     Indication: RHEUMATOID ARTHRITIS
     Dosage: CITRATE FREE
     Route: 058
     Dates: start: 2010

REACTIONS (3)
  - Fall [Recovered/Resolved]
  - Spinal fracture [Recovered/Resolved]
  - Carcinoid tumour of the stomach [Not Recovered/Not Resolved]

NARRATIVE: CASE EVENT DATE: 2015
